FAERS Safety Report 10333780 (Version 4)
Quarter: 2014Q3

REPORT INFORMATION
  Report Type: Spontaneous
  Country: US (occurrence: US)
  Receive Date: 20140723
  Receipt Date: 20140910
  Transmission Date: 20150326
  Serious: Yes (Other)
  Sender: FDA-Public Use
  Company Number: US-AMGEN-USASP2014041816

PATIENT
  Age: 71 Year
  Sex: Male

DRUGS (1)
  1. ENBREL [Suspect]
     Active Substance: ETANERCEPT
     Indication: PSORIASIS
     Dosage: 50 MG, QWK
     Route: 058
     Dates: start: 20040101, end: 2014

REACTIONS (4)
  - Psoriasis [Not Recovered/Not Resolved]
  - Lung disorder [Not Recovered/Not Resolved]
  - Lung infection [Not Recovered/Not Resolved]
  - Chest X-ray abnormal [Unknown]

NARRATIVE: CASE EVENT DATE: 2014
